FAERS Safety Report 5388524-4 (Version None)
Quarter: 2007Q3

REPORT INFORMATION
  Report Type: 
  Country: None (occurrence: None)
  Receive Date: 20070716
  Receipt Date: 20070704
  Transmission Date: 20080115
  Serious: Yes (Hospitalization)
  Sender: FDA-Public Use
  Company Number: FR-PFIZER INC-2005155195

PATIENT
  Sex: Male
  Weight: 68 kg

DRUGS (11)
  1. SU-011,248 [Suspect]
     Indication: RENAL CELL CARCINOMA STAGE UNSPECIFIED
     Route: 048
  2. MONO-TILDIEM [Concomitant]
     Route: 048
     Dates: start: 19950101, end: 20051108
  3. LOSARTAN POTASSIUM [Concomitant]
     Route: 048
  4. ASPEGIC 325 [Concomitant]
     Route: 048
  5. FONZYLANE [Concomitant]
     Route: 048
  6. IRBESARTAN [Concomitant]
     Dosage: DAILY DOSE:300MG
     Route: 048
  7. ALPRESS [Concomitant]
     Route: 048
  8. IMOVANE [Concomitant]
     Route: 048
  9. CALCIDIA [Concomitant]
     Route: 048
  10. LASIX [Concomitant]
     Route: 048
  11. AMOXICILLIN TRIHYDRATE [Concomitant]
     Route: 048
     Dates: start: 20051118, end: 20051207

REACTIONS (7)
  - DIARRHOEA [None]
  - INFECTION [None]
  - NEPHROTIC SYNDROME [None]
  - PROTEINURIA [None]
  - RENAL FAILURE [None]
  - THROMBOCYTOPENIA [None]
  - THROMBOTIC MICROANGIOPATHY [None]
